FAERS Safety Report 24652866 (Version 1)
Quarter: 2024Q4

REPORT INFORMATION
  Report Type: Report from Study
  Country: AR (occurrence: AR)
  Receive Date: 20241122
  Receipt Date: 20241122
  Transmission Date: 20250115
  Serious: Yes (Hospitalization)
  Sender: NOVARTIS
  Company Number: AR-002147023-NVSC2024AR219484

PATIENT
  Age: 67 Year
  Sex: Male

DRUGS (5)
  1. MAYZENT [Suspect]
     Active Substance: SIPONIMOD
     Indication: Multiple sclerosis
     Dosage: 2 MG, QD
     Route: 048
     Dates: start: 20221110
  2. MAYZENT [Suspect]
     Active Substance: SIPONIMOD
     Dosage: UNK, Q72H
     Route: 048
  3. MAYZENT [Suspect]
     Active Substance: SIPONIMOD
     Dosage: 1 MG, QD
     Route: 048
  4. MAYZENT [Suspect]
     Active Substance: SIPONIMOD
     Dosage: 2 MG, QD
     Route: 048
  5. MAYZENT [Suspect]
     Active Substance: SIPONIMOD
     Dosage: 2 MG, Q48H
     Route: 048

REACTIONS (10)
  - Pneumonia [Unknown]
  - Musculoskeletal stiffness [Unknown]
  - Coordination abnormal [Unknown]
  - Memory impairment [Unknown]
  - Pyrexia [Unknown]
  - Asthenia [Unknown]
  - Malaise [Unknown]
  - Respiratory disorder [Unknown]
  - Off label use [Unknown]
  - Hypotension [Unknown]

NARRATIVE: CASE EVENT DATE: 20240105
